FAERS Safety Report 5310800-1 (Version None)
Quarter: 2007Q2

REPORT INFORMATION
  Report Type: 
  Country: None (occurrence: None)
  Receive Date: 20070428
  Receipt Date: 20070417
  Transmission Date: 20071010
  Serious: Yes (Hospitalization, Other)
  Sender: FDA-Public Use
  Company Number: BE-PFIZER INC-2007015226

PATIENT
  Sex: Female
  Weight: 68 kg

DRUGS (2)
  1. EPIRUBICIN HYDROCHLORIDE [Suspect]
     Indication: BREAST CANCER
     Route: 042
  2. TAXOTERE [Concomitant]
     Route: 042

REACTIONS (4)
  - APPLICATION SITE INFLAMMATION [None]
  - EXTRAVASATION [None]
  - LYMPHOEDEMA [None]
  - SKIN NECROSIS [None]
